FAERS Safety Report 9879984 (Version 3)
Quarter: 2015Q1

REPORT INFORMATION
  Report Type: Report from Study
  Country: US (occurrence: US)
  Receive Date: 20140207
  Receipt Date: 20150331
  Transmission Date: 20150721
  Serious: Yes (Death)
  Sender: FDA-Public Use
  Company Number: US-ROCHE-1234266

PATIENT
  Age: 64 Year
  Sex: Female
  Weight: 36.87 kg

DRUGS (38)
  1. HERCEPTIN [Suspect]
     Active Substance: TRASTUZUMAB
     Dosage: LOADING DOSE
     Route: 042
  2. LORAZEPAM. [Suspect]
     Active Substance: LORAZEPAM
     Indication: PRODUCT USED FOR UNKNOWN INDICATION
     Route: 065
  3. EMEND [Concomitant]
     Active Substance: APREPITANT
     Route: 042
     Dates: start: 20130821
  4. NEULASTA [Concomitant]
     Active Substance: PEGFILGRASTIM
     Route: 058
     Dates: start: 20130821
  5. VITAMIN B12 [Concomitant]
     Active Substance: CYANOCOBALAMIN
     Route: 065
     Dates: start: 20130821
  6. GRANISETRON [Concomitant]
     Active Substance: GRANISETRON
     Route: 065
  7. FERRLECIT (UNITED STATES) [Concomitant]
     Route: 042
     Dates: start: 20130807
  8. PERJETA [Suspect]
     Active Substance: PERTUZUMAB
     Route: 042
  9. TYKERB [Suspect]
     Active Substance: LAPATINIB DITOSYLATE
     Indication: BREAST CANCER
     Route: 065
  10. FASLODEX [Concomitant]
     Active Substance: FULVESTRANT
     Indication: BREAST CANCER
  11. PNEUMOCOCCAL VACCINE [Concomitant]
     Active Substance: PNEUMOCOCCAL VACCINE POLYVALENT
     Route: 065
     Dates: start: 20130807
  12. VITAMIN B12 [Concomitant]
     Active Substance: CYANOCOBALAMIN
     Route: 065
     Dates: start: 20130807
  13. XGEVA [Concomitant]
     Active Substance: DENOSUMAB
     Route: 065
     Dates: start: 20130821
  14. TYLENOL [Concomitant]
     Active Substance: ACETAMINOPHEN
     Route: 065
  15. HERCEPTIN [Suspect]
     Active Substance: TRASTUZUMAB
     Route: 042
  16. EMEND [Concomitant]
     Active Substance: APREPITANT
     Route: 042
     Dates: start: 20130807
  17. INFLUENZA VACCINATION [Concomitant]
     Active Substance: INFLUENZA VIRUS VACCINE
     Route: 065
     Dates: start: 20130821
  18. LIDOCAINE. [Concomitant]
     Active Substance: LIDOCAINE
     Route: 065
  19. EMEND [Concomitant]
     Active Substance: APREPITANT
     Route: 042
     Dates: start: 20130821
  20. EMEND [Concomitant]
     Active Substance: APREPITANT
     Route: 042
     Dates: start: 20130807
  21. PNEUMOCOCCAL VACCINE [Concomitant]
     Active Substance: PNEUMOCOCCAL VACCINE POLYVALENT
     Route: 065
     Dates: start: 20130821
  22. FASLODEX [Concomitant]
     Active Substance: FULVESTRANT
     Route: 030
     Dates: start: 20130821
  23. HERCEPTIN [Suspect]
     Active Substance: TRASTUZUMAB
     Indication: BREAST CANCER
     Dosage: RECEIVED A DOSE ON 07/AUG/2013, ?MOST RECENT DOSE: 21/AUG/2013
     Route: 042
     Dates: start: 201207
  24. XGEVA [Concomitant]
     Active Substance: DENOSUMAB
     Route: 065
     Dates: start: 20130807
  25. FASLODEX [Concomitant]
     Active Substance: FULVESTRANT
     Route: 030
     Dates: start: 20130807
  26. DECADRON [Concomitant]
     Active Substance: DEXAMETHASONE
     Route: 042
  27. HERCEPTIN [Suspect]
     Active Substance: TRASTUZUMAB
     Dosage: MAITENANCE DOSE
     Route: 042
  28. KADCYLA [Suspect]
     Active Substance: ADO-TRASTUZUMAB EMTANSINE
     Indication: BREAST CANCER METASTATIC
     Route: 065
     Dates: end: 20131016
  29. NEULASTA [Concomitant]
     Active Substance: PEGFILGRASTIM
     Route: 058
     Dates: start: 20130807
  30. ZOMETA [Concomitant]
     Active Substance: ZOLEDRONIC ACID
     Route: 042
     Dates: start: 20130807
  31. BENADRYL [Concomitant]
     Active Substance: DIPHENHYDRAMINE HYDROCHLORIDE
     Route: 065
  32. HERCEPTIN [Suspect]
     Active Substance: TRASTUZUMAB
     Route: 042
  33. PERJETA [Suspect]
     Active Substance: PERTUZUMAB
     Indication: BREAST CANCER
     Route: 042
  34. FAMOTIDINE. [Concomitant]
     Active Substance: FAMOTIDINE
     Route: 042
     Dates: start: 20130821
  35. FERRLECIT (UNITED STATES) [Concomitant]
     Route: 042
     Dates: start: 20130821
  36. PALONOSETRON [Concomitant]
     Active Substance: PALONOSETRON
     Route: 042
     Dates: start: 20130821
  37. PALONOSETRON [Concomitant]
     Active Substance: PALONOSETRON
     Route: 042
     Dates: start: 20130807
  38. INFLUENZA VACCINATION [Concomitant]
     Active Substance: INFLUENZA VIRUS VACCINE
     Route: 065
     Dates: start: 20130807

REACTIONS (16)
  - Fall [Unknown]
  - Disease recurrence [Unknown]
  - Dizziness [Unknown]
  - Diarrhoea [Unknown]
  - Oedema peripheral [Unknown]
  - Rash [Unknown]
  - Mouth injury [Unknown]
  - Nausea [Unknown]
  - Radiation skin injury [Unknown]
  - Rash erythematous [Unknown]
  - Fatigue [Unknown]
  - Pallor [Unknown]
  - Vomiting [Unknown]
  - Death [Fatal]
  - Chills [Unknown]
  - Asthenia [Unknown]

NARRATIVE: CASE EVENT DATE: 20130403
